FAERS Safety Report 7720112-4 (Version None)
Quarter: 2011Q3

REPORT INFORMATION
  Report Type: 
  Country: None (occurrence: None)
  Receive Date: 20110831
  Receipt Date: 20110827
  Transmission Date: 20111222
  Serious: No
  Sender: FDA-Public Use
  Company Number: US-TEVA-298535USA

PATIENT
  Sex: Female
  Weight: 79.904 kg

DRUGS (3)
  1. BENZACLIN [Concomitant]
     Indication: ACNE
     Dosage: 1 PERCENT;
     Route: 061
  2. DIFFERIN [Concomitant]
     Indication: ACNE
     Dosage: 3 PERCENT;
     Route: 061
  3. PLAN B ONE-STEP [Suspect]
     Indication: POST COITAL CONTRACEPTION
     Dosage: 1.5 MILLIGRAM;
     Route: 048
     Dates: start: 20110817, end: 20110817

REACTIONS (1)
  - MENSTRUATION IRREGULAR [None]
